FAERS Safety Report 6686478-1 (Version None)
Quarter: 2010Q2

REPORT INFORMATION
  Report Type: 
  Country: None (occurrence: None)
  Receive Date: 20100419
  Receipt Date: 20100413
  Transmission Date: 20101027
  Serious: Yes (Hospitalization)
  Sender: FDA-Public Use
  Company Number: FR-ROCHE-691777

PATIENT
  Sex: Male
  Weight: 57.2 kg

DRUGS (3)
  1. BEVACIZUMAB [Suspect]
     Indication: NON-SMALL CELL LUNG CANCER
     Dosage: PERMANENTLY DISCONTINUED.
     Route: 042
     Dates: start: 20100106, end: 20100224
  2. CISPLATIN [Suspect]
     Indication: NON-SMALL CELL LUNG CANCER
     Dosage: PERMANENTLY DISCONTINUED.
     Route: 042
     Dates: start: 20100106, end: 20100224
  3. PEMETREXED [Suspect]
     Indication: NON-SMALL CELL LUNG CANCER
     Dosage: PERMANENTLY DISCONTINUED
     Route: 042
     Dates: start: 20100106, end: 20100224

REACTIONS (2)
  - FEBRILE BONE MARROW APLASIA [None]
  - RENAL FAILURE [None]
